FAERS Safety Report 18977316 (Version 1)
Quarter: 2021Q1

REPORT INFORMATION
  Report Type: Spontaneous
  Country: IN (occurrence: IN)
  Receive Date: 20210306
  Receipt Date: 20210306
  Transmission Date: 20210420
  Serious: Yes (Other)
  Sender: FDA-Public Use
  Company Number: IN-ACCORD-218563

PATIENT
  Age: 12 Year
  Sex: Male

DRUGS (4)
  1. OXALIPLATIN. [Concomitant]
     Active Substance: OXALIPLATIN
     Indication: OESOPHAGEAL ADENOCARCINOMA
     Dosage: 25% DOSE REDUCTION
  2. FOLINIC ACID [Concomitant]
     Active Substance: LEUCOVORIN
     Indication: OESOPHAGEAL ADENOCARCINOMA
     Dosage: 25% DOSE REDUCTION
  3. FLUOROURACIL. [Suspect]
     Active Substance: FLUOROURACIL
     Indication: OESOPHAGEAL ADENOCARCINOMA
     Dosage: FLOT ; 5? FLUOROURACIL 25% DOSE REDUCTION
  4. DOCETAXEL. [Concomitant]
     Active Substance: DOCETAXEL
     Indication: OESOPHAGEAL ADENOCARCINOMA
     Dosage: 25% DOSE REDUCTION

REACTIONS (1)
  - Seizure [Unknown]
